FAERS Safety Report 24526973 (Version 2)
Quarter: 2024Q4

REPORT INFORMATION
  Report Type: Spontaneous
  Country: NL (occurrence: NL)
  Receive Date: 20241021
  Receipt Date: 20241023
  Transmission Date: 20250114
  Serious: Yes (Death)
  Sender: BIOGEN
  Company Number: NL-BIOGEN-2024BI01287363

PATIENT
  Age: 58 Year
  Sex: Female

DRUGS (1)
  1. DALFAMPRIDINE [Suspect]
     Active Substance: DALFAMPRIDINE
     Indication: Multiple sclerosis
     Route: 050
     Dates: start: 20240207

REACTIONS (1)
  - Death [Fatal]

NARRATIVE: CASE EVENT DATE: 20240919
